FAERS Safety Report 10867401 (Version 2)
Quarter: 2015Q1

REPORT INFORMATION
  Report Type: Spontaneous
  Country: IT (occurrence: IT)
  Receive Date: 20150225
  Receipt Date: 20150313
  Transmission Date: 20150721
  Serious: Yes (Hospitalization)
  Sender: FDA-Public Use
  Company Number: IT-SA-2015SA020442

PATIENT
  Age: 86 Year
  Sex: Male

DRUGS (8)
  1. BRILIQUE [Concomitant]
     Active Substance: TICAGRELOR
     Dosage: 90 MG FILM?COATED TABLETS
  2. FUROSEMIDE. [Suspect]
     Active Substance: FUROSEMIDE
     Route: 048
     Dates: start: 20050101, end: 20150205
  3. SPIROLANG [Suspect]
     Active Substance: SPIRONOLACTONE
     Dosage: SPIROLANG, 50 MG
     Route: 048
     Dates: start: 20140101, end: 20150205
  4. ATORVASTATIN [Concomitant]
     Active Substance: ATORVASTATIN
  5. BISOPROLOL HEMIFUMARATE [Suspect]
     Active Substance: BISOPROLOL FUMARATE
     Route: 048
     Dates: start: 20080101, end: 20150205
  6. CARDIOASPIRIN [Concomitant]
     Active Substance: ASPIRIN
     Dosage: 100 MG
  7. TAMSULOSIN HYDROCHLORIDE. [Concomitant]
     Active Substance: TAMSULOSIN HYDROCHLORIDE
  8. ADESITRIN [Suspect]
     Active Substance: NITROGLYCERIN
     Dosage: ADESITRIN 10 MG/24 HOUR TRANSDERMAL PATCH
     Route: 062
     Dates: start: 20130101, end: 20150205

REACTIONS (1)
  - Dizziness [Unknown]

NARRATIVE: CASE EVENT DATE: 20150205
